FAERS Safety Report 4583311-9 (Version None)
Quarter: 2005Q1

REPORT INFORMATION
  Report Type: 
  Country: None (occurrence: None)
  Receive Date: 20050125
  Receipt Date: 20041026
  Transmission Date: 20050727
  Serious: No
  Sender: FDA-Public Use
  Company Number: USA040464667

PATIENT
  Age: 73 Year
  Sex: Female
  Weight: 57 kg

DRUGS (2)
  1. FORTEO [Suspect]
     Indication: OSTEOPOROSIS
     Dosage: 20 UG/1 DAY
     Dates: start: 20040401, end: 20040917
  2. PREVACID [Concomitant]

REACTIONS (10)
  - ARTHRALGIA [None]
  - DIARRHOEA [None]
  - EAR INFECTION [None]
  - HYPOACUSIS [None]
  - MYALGIA [None]
  - NAUSEA [None]
  - PAIN [None]
  - PARAESTHESIA [None]
  - PRURITUS GENERALISED [None]
  - TOTAL LUNG CAPACITY DECREASED [None]
